FAERS Safety Report 5270768-3 (Version None)
Quarter: 2007Q1

REPORT INFORMATION
  Report Type: 
  Country: None (occurrence: None)
  Receive Date: 20070319
  Receipt Date: 20070319
  Transmission Date: 20070707
  Serious: No
  Sender: FDA-Public Use
  Company Number: None

PATIENT
  Age: 74 Year
  Sex: Female

DRUGS (2)
  1. LEVAQUIN [Suspect]
     Indication: URINARY TRACT INFECTION
     Dosage: 250MG  Q48H  PO
     Route: 048
     Dates: start: 20070128, end: 20070207
  2. PRIMAXIN [Suspect]
     Indication: URINARY TRACT INFECTION
     Dosage: 250MG  Q12H  IV
     Route: 042
     Dates: start: 20070203, end: 20070205

REACTIONS (2)
  - PRURITUS [None]
  - RASH [None]
